FAERS Safety Report 4528784-2 (Version None)
Quarter: 2004Q4

REPORT INFORMATION
  Report Type: 
  Country: None (occurrence: None)
  Receive Date: 20041214
  Receipt Date: 20041208
  Transmission Date: 20050328
  Serious: Yes (Life-Threatening, Hospitalization)
  Sender: FDA-Public Use
  Company Number: 2004CG02442

PATIENT
  Age: 72 Year
  Sex: Male

DRUGS (3)
  1. NAROPIN [Suspect]
     Indication: LOCAL ANAESTHESIA
     Dates: start: 20041104, end: 20041104
  2. NAROPIN [Suspect]
     Indication: LOCAL ANAESTHESIA
     Dosage: 10 ML /HR ED
     Route: 008
     Dates: start: 20041104, end: 20041105
  3. MORPHINE [Concomitant]

REACTIONS (3)
  - ACUTE PULMONARY OEDEMA [None]
  - ANAESTHETIC COMPLICATION [None]
  - PARAPLEGIA [None]
